FAERS Safety Report 6905141-2 (Version None)
Quarter: 2010Q3

REPORT INFORMATION
  Report Type: 
  Country: None (occurrence: None)
  Receive Date: 20100804
  Receipt Date: 20091009
  Transmission Date: 20110219
  Serious: No
  Sender: FDA-Public Use
  Company Number: US-PFIZER INC-2009230397

PATIENT
  Sex: Female
  Weight: 81.633 kg

DRUGS (16)
  1. LYRICA [Suspect]
     Indication: BONE PAIN
     Dosage: 50 MG, 1X/DAY
     Route: 048
     Dates: start: 20090616, end: 20090618
  2. GLUCOPHAGE [Concomitant]
     Dosage: UNK
  3. LIPITOR [Concomitant]
     Dosage: UNK
  4. ENALAPRIL [Concomitant]
     Dosage: UNK
  5. BYETTA [Concomitant]
     Dosage: UNK
  6. ALLEGRA [Concomitant]
     Dosage: UNK
  7. MOBIC [Concomitant]
     Dosage: UNK
  8. VESICARE [Concomitant]
     Dosage: UNK
  9. SKELAXIN [Concomitant]
     Dosage: UNK
  10. TRICOR [Concomitant]
     Dosage: UNK
  11. MULTI-VITAMINS [Concomitant]
     Dosage: UNK
  12. VITAMIN E [Concomitant]
     Dosage: UNK
  13. ZOLOFT [Concomitant]
     Indication: DEPRESSION
     Dosage: UNK
  14. ZOLOFT [Concomitant]
     Indication: ANXIETY
  15. WELLBUTRIN [Concomitant]
     Indication: ANXIETY
     Dosage: UNK
  16. WELLBUTRIN [Concomitant]
     Indication: DEPRESSION

REACTIONS (1)
  - DISTURBANCE IN ATTENTION [None]
